FAERS Safety Report 12960480 (Version 2)
Quarter: 2017Q1

REPORT INFORMATION
  Report Type: Spontaneous
  Country: US (occurrence: US)
  Receive Date: 20161121
  Receipt Date: 20170119
  Transmission Date: 20170428
  Serious: Yes (Other)
  Sender: FDA-Public Use
  Company Number: US-LUNDBECK-DKLU2022742

PATIENT
  Sex: Male

DRUGS (1)
  1. NORTHERA [Suspect]
     Active Substance: DROXIDOPA
     Indication: EXTRAPYRAMIDAL DISORDER
     Dosage: SCHEDULE C
     Route: 065

REACTIONS (9)
  - Condition aggravated [Unknown]
  - Fall [Unknown]
  - Nuchal rigidity [Unknown]
  - Reduced facial expression [Unknown]
  - Extrapyramidal disorder [Unknown]
  - Gaze palsy [Unknown]
  - Drug ineffective [Unknown]
  - Speech disorder [Unknown]
  - Gait disturbance [Unknown]
